FAERS Safety Report 5402306-6 (Version None)
Quarter: 2007Q3

REPORT INFORMATION
  Report Type: 
  Country: None (occurrence: None)
  Receive Date: 20070801
  Receipt Date: 20070727
  Transmission Date: 20080115
  Serious: Yes (Death, Hospitalization, Other)
  Sender: FDA-Public Use
  Company Number: US-ASTRAZENECA-2007UW17176

PATIENT
  Age: 58 Year
  Sex: Male

DRUGS (5)
  1. CRESTOR [Suspect]
     Route: 048
     Dates: start: 20040601, end: 20070101
  2. PLAVIX [Suspect]
     Route: 048
     Dates: end: 20070101
  3. BENICAR [Suspect]
     Route: 048
     Dates: end: 20070101
  4. NPH INSULIN [Concomitant]
     Indication: DIABETES MELLITUS
     Dosage: 15 UNITS AM, 10 UNITS PM
     Route: 030
     Dates: end: 20070101
  5. ASPIRIN [Concomitant]
     Route: 048
     Dates: end: 20070101

REACTIONS (4)
  - HEPATIC FAILURE [None]
  - HEPATITIS CHOLESTATIC [None]
  - METABOLIC ACIDOSIS [None]
  - RENAL FAILURE [None]
